FAERS Safety Report 8561321-4 (Version None)
Quarter: 2012Q3

REPORT INFORMATION
  Report Type: 
  Country: None (occurrence: None)
  Receive Date: 20120802
  Receipt Date: 20120724
  Transmission Date: 20120928
  Serious: No
  Sender: FDA-Public Use
  Company Number: US-ASTRAZENECA-2012SE38482

PATIENT
  Age: 32 Year
  Sex: Male
  Weight: 115.7 kg

DRUGS (16)
  1. SEROQUEL [Suspect]
     Indication: SLEEP DISORDER
     Route: 048
  2. ZOLOFT [Concomitant]
  3. SEROQUEL [Suspect]
     Dosage: ONE AND HALF TABLETS OF 200 MG, TOTAL DAILY DOSE 300 MG AT NIGHT
     Route: 048
     Dates: start: 20120619
  4. SEROQUEL [Suspect]
     Indication: AFFECTIVE DISORDER
     Route: 048
  5. LISINOPRIL [Concomitant]
  6. ALLOPURINOL [Concomitant]
  7. SEROQUEL [Suspect]
     Dosage: ONE AND HALF TABLETS OF 200 MG, TOTAL DAILY DOSE 300 MG AT NIGHT
     Route: 048
     Dates: start: 20120619
  8. SEROQUEL [Suspect]
     Indication: MENTAL DISORDER
     Route: 048
  9. SEROQUEL [Suspect]
     Dosage: ONE AND HALF TABLETS OF 200 MG, TOTAL DAILY DOSE 300 MG AT NIGHT
     Route: 048
     Dates: start: 20120619
  10. METFORMIN HYDROCHLORIDE [Concomitant]
  11. LANTUS [Concomitant]
  12. NEURONTIN [Concomitant]
  13. PANTOPRAZOLE [Concomitant]
  14. SEROQUEL [Suspect]
     Indication: BIPOLAR II DISORDER
     Route: 048
  15. SEROQUEL [Suspect]
     Dosage: ONE AND HALF TABLETS OF 200 MG, TOTAL DAILY DOSE 300 MG AT NIGHT
     Route: 048
     Dates: start: 20120619
  16. VALIUM [Concomitant]

REACTIONS (4)
  - BLOOD GLUCOSE DECREASED [None]
  - INSOMNIA [None]
  - BLOOD PRESSURE DECREASED [None]
  - OFF LABEL USE [None]
